FAERS Safety Report 20196126 (Version 2)
Quarter: 2021Q4

REPORT INFORMATION
  Report Type: Spontaneous
  Country: US (occurrence: US)
  Receive Date: 20211216
  Receipt Date: 20211231
  Transmission Date: 20220303
  Serious: Yes (Death, Hospitalization)
  Sender: FDA-Public Use
  Company Number: US-TEVA-2021-US-1986949

PATIENT
  Age: 65 Year
  Sex: Female

DRUGS (3)
  1. PREDNISONE [Suspect]
     Active Substance: PREDNISONE
     Indication: Cholangitis
     Dosage: 40 MILLIGRAM DAILY;
     Route: 065
  2. PREDNISONE [Suspect]
     Active Substance: PREDNISONE
     Indication: Hepatitis
     Dosage: 60 MILLIGRAM DAILY;
     Route: 065
  3. PEMBROLIZUMAB [Suspect]
     Active Substance: PEMBROLIZUMAB
     Indication: Lung squamous cell carcinoma metastatic
     Dosage: 26 CYCLES
     Route: 065

REACTIONS (11)
  - Cholangitis infective [Fatal]
  - Abscess fungal [Fatal]
  - Fungaemia [Fatal]
  - Respiratory failure [Fatal]
  - Cholangitis [Recovered/Resolved]
  - Hepatitis [Recovered/Resolved]
  - Adrenal insufficiency [Not Recovered/Not Resolved]
  - Biliary obstruction [Not Recovered/Not Resolved]
  - Septic shock [Not Recovered/Not Resolved]
  - Bile duct stenosis [Not Recovered/Not Resolved]
  - Biliary obstruction [Not Recovered/Not Resolved]
